FAERS Safety Report 4833661-3 (Version None)
Quarter: 2005Q4

REPORT INFORMATION
  Report Type: 
  Country: None (occurrence: None)
  Receive Date: 20051116
  Receipt Date: 20051102
  Transmission Date: 20060501
  Serious: Yes (Other)
  Sender: FDA-Public Use
  Company Number: 2005150432

PATIENT
  Age: 43 Year
  Sex: Female
  Weight: 61.2356 kg

DRUGS (1)
  1. LISTERINE ANTISEPTIC MOUTHWASH (MENTHOL, METHYL SALICYLATE, EUCALYPTOL [Suspect]
     Indication: INTENTIONAL OVERDOSE
     Dosage: 1/2 OF 1.5L BOTTLE, ORAL
     Route: 048
     Dates: start: 20051102, end: 20051102

REACTIONS (2)
  - AGGRESSION [None]
  - INTENTIONAL OVERDOSE [None]
